FAERS Safety Report 6375152-7 (Version None)
Quarter: 2009Q3

REPORT INFORMATION
  Report Type: 
  Country: None (occurrence: None)
  Receive Date: 20090924
  Receipt Date: 20090915
  Transmission Date: 20100115
  Serious: Yes (Hospitalization)
  Sender: FDA-Public Use
  Company Number: IT-ASTRAZENECA-2009SE13525

PATIENT
  Age: 22729 Day
  Sex: Female

DRUGS (4)
  1. SEROQUEL [Suspect]
     Route: 048
     Dates: start: 20080811, end: 20090811
  2. SEROQUEL [Suspect]
     Route: 048
     Dates: start: 20080811, end: 20090811
  3. LACTULOSE [Concomitant]
  4. VALIUM [Concomitant]

REACTIONS (1)
  - GASTROINTESTINAL HYPOMOTILITY [None]
